APPROVED DRUG PRODUCT: THIOTHIXENE
Active Ingredient: THIOTHIXENE
Strength: 2MG
Dosage Form/Route: CAPSULE;ORAL
Application: A071885 | Product #001
Applicant: AMERICAN THERAPEUTICS INC
Approved: Aug 12, 1987 | RLD: No | RS: No | Type: DISCN